FAERS Safety Report 4589591-8 (Version None)
Quarter: 2005Q1

REPORT INFORMATION
  Report Type: 
  Country: None (occurrence: None)
  Receive Date: 20050223
  Receipt Date: 20031118
  Transmission Date: 20050727
  Serious: Yes (Hospitalization, Other)
  Sender: FDA-Public Use
  Company Number: CH-MERCK-0311CHE00033

PATIENT
  Age: 54 Year
  Sex: Male
  Weight: 105 kg

DRUGS (6)
  1. ZETIA [Suspect]
     Indication: MIXED HYPERLIPIDAEMIA
     Route: 048
     Dates: start: 20031106, end: 20031113
  2. FLUVASTATIN SODIUM [Suspect]
     Indication: MIXED HYPERLIPIDAEMIA
     Route: 048
     Dates: end: 20031113
  3. FENOFIBRATE [Suspect]
     Indication: MIXED HYPERLIPIDAEMIA
     Route: 048
     Dates: end: 20031113
  4. CLOZAPINE [Suspect]
     Indication: PSYCHOTIC DISORDER
     Route: 048
  5. ESOMEPRAZOLE MAGNESIUM [Concomitant]
     Route: 048
  6. METOCLOPRAMIDE HYDROCHLORIDE [Concomitant]
     Route: 048

REACTIONS (4)
  - BLOOD CREATINE PHOSPHOKINASE INCREASED [None]
  - DRUG INTERACTION [None]
  - MYOPATHY [None]
  - RHABDOMYOLYSIS [None]
